FAERS Safety Report 4667476-6 (Version None)
Quarter: 2005Q2

REPORT INFORMATION
  Report Type: 
  Country: None (occurrence: None)
  Receive Date: 20050519
  Receipt Date: 20050519
  Transmission Date: 20051028
  Serious: Yes (Disabling)
  Sender: FDA-Public Use
  Company Number: None

PATIENT
  Age: 30 Year
  Sex: Male
  Weight: 72.5755 kg

DRUGS (1)
  1. CIPRO [Suspect]
     Indication: ABDOMINAL PAIN UPPER
     Dosage: 500MG   2/DAY    ORAL
     Route: 048
     Dates: start: 20050205, end: 20050208

REACTIONS (3)
  - ANXIETY [None]
  - FEELING ABNORMAL [None]
  - PANIC REACTION [None]
